FAERS Safety Report 8050019-7 (Version None)
Quarter: 2012Q1

REPORT INFORMATION
  Report Type: 
  Country: None (occurrence: None)
  Receive Date: 20120117
  Receipt Date: 20120106
  Transmission Date: 20120608
  Serious: Yes (Other)
  Sender: FDA-Public Use
  Company Number: FR-JNJFOC-20120102783

PATIENT
  Age: 42 Year
  Sex: Female

DRUGS (2)
  1. REMICADE [Suspect]
     Dosage: FROM FIFTH INFUSION
     Route: 042
  2. REMICADE [Suspect]
     Indication: SARCOIDOSIS
     Route: 042
     Dates: start: 20050901

REACTIONS (2)
  - CERVICAL DYSPLASIA [None]
  - STAPHYLOCOCCAL SKIN INFECTION [None]
